FAERS Safety Report 4767986-7 (Version None)
Quarter: 2005Q3

REPORT INFORMATION
  Report Type: 
  Country: None (occurrence: None)
  Receive Date: 20050913
  Receipt Date: 20050829
  Transmission Date: 20060218
  Serious: Yes (Death, Other)
  Sender: FDA-Public Use
  Company Number: HQWYE226101SEP05

PATIENT
  Sex: Female

DRUGS (4)
  1. PREMARIN [Suspect]
     Dosage: UNK
     Route: 065
  2. CYCRIN [Suspect]
     Dosage: UNK
     Route: 065
  3. MEDROXYPROGESTERONE [Suspect]
     Dosage: UNK
     Route: 065
  4. PROVERA [Suspect]
     Dosage: UNK
     Route: 065

REACTIONS (1)
  - BREAST CANCER FEMALE [None]
